FAERS Safety Report 17182187 (Version 2)
Quarter: 2020Q1

REPORT INFORMATION
  Report Type: Spontaneous
  Country: PT (occurrence: PT)
  Receive Date: 20191219
  Receipt Date: 20200124
  Transmission Date: 20200409
  Serious: Yes (Other)
  Sender: FDA-Public Use
  Company Number: PT-JNJFOC-20191212784

PATIENT
  Age: 41 Year
  Sex: Female

DRUGS (3)
  1. PREDISOLONE [Concomitant]
     Active Substance: PREDNISOLONE
     Route: 065
  2. PREDISOLONE [Concomitant]
     Active Substance: PREDNISOLONE
     Indication: SARCOIDOSIS
     Route: 065
  3. REMICADE [Suspect]
     Active Substance: INFLIXIMAB
     Indication: CROHN^S DISEASE
     Dosage: 5 MG/KG, 2X/MONTH
     Route: 042
     Dates: start: 2014

REACTIONS (2)
  - Demyelination [Recovered/Resolved]
  - Neurosarcoidosis [Recovered/Resolved]

NARRATIVE: CASE EVENT DATE: 201805
